FAERS Safety Report 12827945 (Version 1)
Quarter: 2016Q4

REPORT INFORMATION
  Report Type: Report from Study
  Country: BR (occurrence: BR)
  Receive Date: 20161007
  Receipt Date: 20161007
  Transmission Date: 20170207
  Serious: Yes (Other)
  Sender: FDA-Public Use
  Company Number: ALCN2016BR006815

PATIENT
  Age: 77 Year
  Sex: Female
  Weight: 77 kg

DRUGS (1)
  1. VITALUX [Suspect]
     Active Substance: MINERALS\VITAMINS
     Indication: EYE DEGENERATIVE DISORDER
     Dosage: 1 DF, QD (AT LUNCH)
     Route: 065
     Dates: start: 201509

REACTIONS (2)
  - Foot fracture [Recovered/Resolved]
  - Fall [Recovered/Resolved]

NARRATIVE: CASE EVENT DATE: 20160916
